FAERS Safety Report 6086867-2 (Version None)
Quarter: 2009Q1

REPORT INFORMATION
  Report Type: 
  Country: None (occurrence: None)
  Receive Date: 20090223
  Receipt Date: 20090211
  Transmission Date: 20090719
  Serious: Yes (Other)
  Sender: FDA-Public Use
  Company Number: GB-PFIZER INC-2009169950

PATIENT

DRUGS (3)
  1. CIPROFLOXACIN HCL [Interacting]
  2. VORICONAZOLE [Suspect]
     Indication: ASPERGILLOSIS
     Route: 048
  3. PREDNISOLONE [Concomitant]
     Route: 048

REACTIONS (2)
  - DRUG INTERACTION [None]
  - HALLUCINATION [None]
